FAERS Safety Report 10034806 (Version 1)
Quarter: 2014Q1

REPORT INFORMATION
  Report Type: Spontaneous
  Country: GB (occurrence: None)
  Receive Date: 20140321
  Receipt Date: 20140321
  Transmission Date: 20141002
  Serious: Yes (Other)
  Sender: FDA-Public Use
  Company Number: FK201400888

PATIENT
  Age: 63 Year
  Sex: Female
  Weight: 110.4 kg

DRUGS (6)
  1. PACLITAXEL (MANUFACTURER UNKNOWN) (PACLITAXEL) (PACLITAXEL) [Suspect]
     Indication: NEOPLASM MALIGNANT
     Dosage: 380 MG, INTRAVENOUS (NOT OTHERWISE SPECIFIED)?
     Route: 042
     Dates: start: 20140228, end: 20140228
  2. BUSCOPAN (HYOSCINE BUTYLBROMIDE) (HYOSCINE BUTYLBROMIDE) [Concomitant]
  3. DEXAMETHASONE (DEXAMETHASONE) [Concomitant]
  4. DOCUSATE (DOCUSATE) [Concomitant]
  5. DOMPERIDONE (DOMPERIDONE) [Concomitant]
  6. NAPROXEN (NAPROXEN) [Concomitant]

REACTIONS (5)
  - Flushing [None]
  - Palpitations [None]
  - Dyspnoea [None]
  - Malaise [None]
  - Infusion related reaction [None]
